FAERS Safety Report 13924467 (Version 1)
Quarter: 2017Q3

REPORT INFORMATION
  Report Type: Spontaneous
  Country: US (occurrence: US)
  Receive Date: 20170831
  Receipt Date: 20170831
  Transmission Date: 20171127
  Serious: No
  Sender: FDA-Public Use
  Company Number: US-BAYER-2017-164748

PATIENT
  Sex: Female

DRUGS (2)
  1. MIRENA [Suspect]
     Active Substance: LEVONORGESTREL
     Dosage: 20 MCG/24HR, CONT
     Route: 015
     Dates: start: 20170802
  2. IBUPROFEN BAYER [Concomitant]

REACTIONS (2)
  - Abdominal pain lower [Unknown]
  - Procedural pain [Unknown]

NARRATIVE: CASE EVENT DATE: 201708
